FAERS Safety Report 9336638 (Version 2)
Quarter: 2013Q2

REPORT INFORMATION
  Report Type: Report from Study
  Country: BR (occurrence: BR)
  Receive Date: 20130607
  Receipt Date: 20130617
  Transmission Date: 20140414
  Serious: Yes (Hospitalization, Other)
  Sender: FDA-Public Use
  Company Number: PHHY2013BR057543

PATIENT
  Sex: Female
  Weight: 65 kg

DRUGS (8)
  1. EXELON PATCH [Suspect]
     Indication: DEMENTIA ALZHEIMER^S TYPE
     Dosage: 4.6 MG (PATCH 5 CM2), DAILY
     Route: 062
     Dates: start: 20130521, end: 20130521
  2. EXELON PATCH [Suspect]
     Indication: EXTRAPYRAMIDAL DISORDER
  3. LOSARTAN [Concomitant]
     Indication: BLOOD PRESSURE ABNORMAL
     Dosage: 1 DF, DAILY
  4. RISPERIDONE [Concomitant]
     Dosage: 0.5 DF, DAILY
     Dates: start: 20130520
  5. HYDROCHLOROTHIAZIDE [Concomitant]
     Dosage: UNK UKN, UNK
  6. DRUG THERAPY NOS [Concomitant]
     Indication: GASTROINTESTINAL MOTILITY DISORDER
     Dosage: UNK UKN, UNK
  7. DIGESAN [Concomitant]
     Indication: GASTRIC DISORDER
     Dosage: UNK UKN, UNK
  8. ALPRAZOLAM [Concomitant]
     Dosage: UNK UKN, UNK

REACTIONS (15)
  - Shock [Recovering/Resolving]
  - Convulsion [Recovering/Resolving]
  - Foaming at mouth [Recovering/Resolving]
  - Parkinson^s disease [Recovering/Resolving]
  - Arteriosclerosis [Recovering/Resolving]
  - Speech disorder [Recovering/Resolving]
  - Wound [Recovering/Resolving]
  - Hypersomnia [Recovering/Resolving]
  - Nasopharyngitis [Recovering/Resolving]
  - Haematoma [Recovering/Resolving]
  - Hypotension [Recovering/Resolving]
  - Presyncope [Recovering/Resolving]
  - Tremor [Recovering/Resolving]
  - Dizziness [Recovering/Resolving]
  - Malaise [Recovering/Resolving]
